FAERS Safety Report 5738925-7 (Version None)
Quarter: 2008Q2

REPORT INFORMATION
  Report Type: 
  Country: None (occurrence: None)
  Receive Date: 20080515
  Receipt Date: 20080507
  Transmission Date: 20081010
  Serious: Yes (Other)
  Sender: FDA-Public Use
  Company Number: US-ROCHE-563134

PATIENT
  Age: 18 Year
  Sex: Female

DRUGS (4)
  1. ACCUTANE [Suspect]
     Indication: ACNE
     Route: 065
  2. ABILIFY [Concomitant]
     Route: 065
  3. MELATONIN [Concomitant]
     Dosage: OTC MELATONIN
     Route: 065
  4. LEXAPRO [Concomitant]
     Route: 065

REACTIONS (2)
  - HALLUCINATION [None]
  - PARANOIA [None]
